FAERS Safety Report 12268453 (Version 4)
Quarter: 2017Q3

REPORT INFORMATION
  Report Type: Report from Study
  Country: FR (occurrence: FR)
  Receive Date: 20160414
  Receipt Date: 20170912
  Transmission Date: 20171127
  Serious: Yes (Hospitalization, Other)
  Sender: FDA-Public Use
  Company Number: FR-ASTELLAS-2015US040599

PATIENT
  Age: 68 Year
  Sex: Male

DRUGS (23)
  1. TACROLIMUS. [Suspect]
     Active Substance: TACROLIMUS
     Route: 048
     Dates: start: 20151008, end: 20151109
  2. ARANESP [Concomitant]
     Active Substance: DARBEPOETIN ALFA
     Indication: PRODUCT USED FOR UNKNOWN INDICATION
     Route: 065
  3. TACROLIMUS. [Suspect]
     Active Substance: TACROLIMUS
     Route: 048
     Dates: start: 20150912, end: 20151008
  4. TACROLIMUS. [Suspect]
     Active Substance: TACROLIMUS
     Indication: IMMUNOSUPPRESSANT DRUG THERAPY
     Dosage: 6 MG, DAILY
     Route: 048
     Dates: start: 20140702, end: 20150203
  5. AMLOR [Concomitant]
     Active Substance: AMLODIPINE BESYLATE
     Indication: HYPERTENSION
     Route: 048
  6. IMUREL                             /00001501/ [Suspect]
     Active Substance: AZATHIOPRINE SODIUM
     Indication: IMMUNOSUPPRESSANT DRUG THERAPY
     Dosage: UNK UNK, UNKNOWN FREQ.
     Route: 048
     Dates: start: 20140702
  7. KAYEXALATE [Concomitant]
     Active Substance: SODIUM POLYSTYRENE SULFONATE
     Indication: RENAL FAILURE
     Dosage: UNK UNK, ONCE DAILY (1 SPOON DAILY)
     Route: 048
  8. INEXIUM                            /01479302/ [Suspect]
     Active Substance: ESOMEPRAZOLE MAGNESIUM
     Indication: PROPHYLAXIS
     Route: 048
     Dates: end: 20150916
  9. TACROLIMUS. [Suspect]
     Active Substance: TACROLIMUS
     Route: 048
     Dates: start: 20151109, end: 20151211
  10. CORTANCYL [Concomitant]
     Active Substance: PREDNISONE
     Indication: STEROID THERAPY
     Route: 048
  11. PRIVIGEN [Concomitant]
     Active Substance: HUMAN IMMUNOGLOBULIN G
     Indication: ANTI-INFECTIVE THERAPY
     Route: 048
  12. CELLCEPT [Suspect]
     Active Substance: MYCOPHENOLATE MOFETIL\MYCOPHENOLATE MOFETIL HYDROCHLORIDE
     Indication: IMMUNOSUPPRESSANT DRUG THERAPY
     Dosage: UNK UNK, ONCE DAILY
     Route: 048
  13. NEXIUM [Concomitant]
     Active Substance: ESOMEPRAZOLE MAGNESIUM
     Indication: PROPHYLAXIS
     Route: 048
  14. WELLVONE [Concomitant]
     Active Substance: ATOVAQUONE
     Indication: INFECTION PARASITIC
     Route: 048
  15. LEDERFOLINE [Concomitant]
     Active Substance: LEUCOVORIN CALCIUM
     Indication: DETOXIFICATION
     Route: 048
  16. CARDENSIEL [Concomitant]
     Active Substance: BISOPROLOL FUMARATE
     Indication: HYPERTENSION
     Route: 048
  17. TACROLIMUS. [Suspect]
     Active Substance: TACROLIMUS
     Route: 048
     Dates: start: 20151211
  18. BACTRIM [Suspect]
     Active Substance: SULFAMETHOXAZOLE\TRIMETHOPRIM
     Indication: ANTI-INFECTIVE THERAPY
     Dosage: UNK, UNKNOWN FREQ.
     Route: 048
     Dates: end: 20150806
  19. ROVALCYTE [Suspect]
     Active Substance: VALGANCICLOVIR HYDROCHLORIDE
     Indication: ANTI-INFECTIVE THERAPY
     Route: 048
     Dates: end: 20150916
  20. TACROLIMUS. [Suspect]
     Active Substance: TACROLIMUS
     Indication: IMMUNOSUPPRESSANT DRUG THERAPY
     Route: 048
     Dates: start: 20150203
  21. IMUREL                             /00001501/ [Suspect]
     Active Substance: AZATHIOPRINE SODIUM
     Route: 048
     Dates: start: 201501, end: 20150916
  22. TAHOR [Concomitant]
     Active Substance: ATORVASTATIN CALCIUM
     Indication: HYPERLIPIDAEMIA
     Route: 048
  23. CALCIPARINE [Concomitant]
     Active Substance: HEPARIN CALCIUM
     Indication: THROMBOSIS
     Dosage: UNK UNK, UNKNOWN FREQ.
     Route: 065

REACTIONS (5)
  - Polyomavirus-associated nephropathy [Recovered/Resolved]
  - Bone marrow failure [Recovered/Resolved]
  - Transplant rejection [Recovered/Resolved]
  - BK virus infection [Not Recovered/Not Resolved]
  - Pneumocystis jirovecii pneumonia [Recovered/Resolved]

NARRATIVE: CASE EVENT DATE: 20150806
